FAERS Safety Report 14341389 (Version 1)
Quarter: 2018Q1

REPORT INFORMATION
  Report Type: Report from Study
  Country: IT (occurrence: IT)
  Receive Date: 20180102
  Receipt Date: 20180102
  Transmission Date: 20180509
  Serious: Yes (Other)
  Sender: FDA-Public Use
  Company Number: IT-CIPLA LTD.-2017IT29449

PATIENT

DRUGS (1)
  1. IRINOTECAN [Suspect]
     Active Substance: IRINOTECAN
     Indication: SOFT TISSUE SARCOMA
     Dosage: 20 MG/M2/DAY, FOR 5 DAYS A WEEK, FOR 2 CONSECUTIVE WEEKS, EVERY 4 WEEKS
     Route: 042

REACTIONS (1)
  - Disease progression [Unknown]
